FAERS Safety Report 8188766-9 (Version None)
Quarter: 2012Q1

REPORT INFORMATION
  Report Type: 
  Country: None (occurrence: None)
  Receive Date: 20120306
  Receipt Date: 20120221
  Transmission Date: 20120608
  Serious: Yes (Hospitalization)
  Sender: FDA-Public Use
  Company Number: MA-FRI-1000028724

PATIENT
  Age: 65 Year
  Sex: Male

DRUGS (3)
  1. FOSFOMYCIN [Suspect]
     Indication: SEPTIC SHOCK
     Dosage: 16 G
  2. IMIPENEM [Suspect]
     Indication: SEPTIC SHOCK
     Dosage: 2 G
  3. COLISTIN SULFATE [Suspect]
     Indication: SEPTIC SHOCK
     Dosage: 3 MILLION IU

REACTIONS (1)
  - SEPSIS [None]
